FAERS Safety Report 11148965 (Version 1)
Quarter: 2015Q2

REPORT INFORMATION
  Report Type: Report from Study
  Country: DE (occurrence: DE)
  Receive Date: 20150529
  Receipt Date: 20150529
  Transmission Date: 20150821
  Serious: Yes (Hospitalization)
  Sender: FDA-Public Use
  Company Number: DE-ABBVIE-15P-062-1344548-00

PATIENT
  Sex: Male

DRUGS (1)
  1. DUODOPA [Suspect]
     Active Substance: CARBIDOPA\LEVODOPA
     Indication: PARKINSON^S DISEASE
     Dosage: MD 8.0 ML,CRD 3.2 ML/H,CRN 2.0 ML/H,ED 1.5 ML
     Route: 050
     Dates: start: 20101116, end: 20150128

REACTIONS (3)
  - Catheter site discharge [Not Recovered/Not Resolved]
  - General physical health deterioration [Unknown]
  - Stoma site inflammation [Unknown]
